FAERS Safety Report 6614302-1 (Version None)
Quarter: 2010Q1

REPORT INFORMATION
  Report Type: 
  Country: None (occurrence: None)
  Receive Date: 20100303
  Receipt Date: 20100303
  Transmission Date: 20100710
  Serious: Yes (Other)
  Sender: FDA-Public Use
  Company Number: None

PATIENT
  Sex: Male
  Weight: 70.3075 kg

DRUGS (2)
  1. METOCLOPRAMIDE [Suspect]
     Indication: COLECTOMY
     Dosage: 5MG 4 TIEMS DAILY PO
     Route: 048
     Dates: start: 20091029, end: 20100302
  2. METOCLOPRAMIDE [Suspect]
     Indication: GASTROINTESTINAL DISORDER
     Dosage: 5MG 4 TIEMS DAILY PO
     Route: 048
     Dates: start: 20091029, end: 20100302

REACTIONS (3)
  - MOTOR DYSFUNCTION [None]
  - MUSCLE SPASMS [None]
  - PAIN IN EXTREMITY [None]
